FAERS Safety Report 8436570-6 (Version None)
Quarter: 2012Q2

REPORT INFORMATION
  Report Type: 
  Country: None (occurrence: None)
  Receive Date: 20120614
  Receipt Date: 20120613
  Transmission Date: 20120825
  Serious: Yes (Other)
  Sender: FDA-Public Use
  Company Number: CA-BAYER-2012-053819

PATIENT
  Age: 45 Year
  Sex: Female

DRUGS (10)
  1. OXAZEPAM [Concomitant]
  2. SYNTHROID [Concomitant]
  3. ZANTAC [Concomitant]
  4. GABAPENTIN [Concomitant]
  5. BETASERON [Suspect]
     Indication: RELAPSING-REMITTING MULTIPLE SCLEROSIS
     Dosage: 8 MIU, QOD
     Route: 058
     Dates: start: 19980801
  6. WELLBUTRIN [Concomitant]
  7. HYDROCHLOROTHIAZIDE [Concomitant]
  8. VITAMIN D [Concomitant]
  9. AMITRIPTYLINE HCL [Concomitant]
  10. PANTOPRAZOLE [Concomitant]

REACTIONS (3)
  - SYNCOPE [None]
  - ORTHOSTATIC HYPOTENSION [None]
  - LIVEDO RETICULARIS [None]
